FAERS Safety Report 13942367 (Version 2)
Quarter: 2017Q3

REPORT INFORMATION
  Report Type: Report from Study
  Country: PA (occurrence: PA)
  Receive Date: 20170907
  Receipt Date: 20170920
  Transmission Date: 20171127
  Serious: Yes (Hospitalization, Other)
  Sender: FDA-Public Use
  Company Number: PHHY2017PA129637

PATIENT
  Sex: Male
  Weight: 73.16 kg

DRUGS (1)
  1. EXJADE [Suspect]
     Active Substance: DEFERASIROX
     Indication: SICKLE CELL ANAEMIA
     Dosage: 500 MG, QD
     Route: 065

REACTIONS (4)
  - Infection [Unknown]
  - Back pain [Unknown]
  - Haemoglobin abnormal [Unknown]
  - Pyrexia [Unknown]
